FAERS Safety Report 12620180 (Version 1)
Quarter: 2016Q3

REPORT INFORMATION
  Report Type: Report from Study
  Country: None (occurrence: DE)
  Receive Date: 20160803
  Receipt Date: 20160803
  Transmission Date: 20161109
  Serious: Yes (Hospitalization)
  Sender: FDA-Public Use
  Company Number: DE-ALLERGAN-1664590US

PATIENT
  Age: 68 Year
  Sex: Male
  Weight: 80 kg

DRUGS (5)
  1. PIROXICAM. [Suspect]
     Active Substance: PIROXICAM
     Indication: DISLOCATION OF VERTEBRA
     Dosage: 20 MG, QD
     Route: 048
  2. SUCRALFATE - BP [Suspect]
     Active Substance: SUCRALFATE
     Indication: GASTRITIS
     Dosage: 4 DF, QD
     Route: 048
     Dates: start: 19891203, end: 19891223
  3. SUCRALFATE - BP [Suspect]
     Active Substance: SUCRALFATE
     Indication: DUODENITIS
  4. ACETYLSALICYLIC ACID [Suspect]
     Active Substance: ASPIRIN
     Indication: CEREBROVASCULAR DISORDER
     Dosage: 1.5 MG, QD
     Route: 048
  5. BELOC [Concomitant]
     Active Substance: METOPROLOL TARTRATE
     Indication: PRODUCT USED FOR UNKNOWN INDICATION
     Dosage: UNK
     Dates: start: 1980

REACTIONS (1)
  - Upper gastrointestinal haemorrhage [Recovering/Resolving]

NARRATIVE: CASE EVENT DATE: 19891223
